FAERS Safety Report 16925164 (Version 1)
Quarter: 2019Q4

REPORT INFORMATION
  Report Type: Spontaneous
  Country: US (occurrence: US)
  Receive Date: 20190823
  Receipt Date: 20190823
  Transmission Date: 20200122
  Serious: No
  Sender: FDA-Public Use
  Company Number: None

PATIENT
  Age: 75 Year
  Sex: Male

DRUGS (1)
  1. ERLEADA [Suspect]
     Active Substance: APALUTAMIDE
     Dosage: ?          OTHER DOSE:4 TABS;?
     Route: 048
     Dates: start: 201907, end: 201908

REACTIONS (2)
  - Mobility decreased [None]
  - Blood pressure increased [None]

NARRATIVE: CASE EVENT DATE: 20190823
